FAERS Safety Report 15226003 (Version 1)
Quarter: 2018Q3

REPORT INFORMATION
  Report Type: Spontaneous
  Country: US (occurrence: US)
  Receive Date: 20180705
  Receipt Date: 20180705
  Transmission Date: 20181010
  Serious: Yes (Hospitalization)
  Sender: FDA-Public Use
  Company Number: None

PATIENT
  Age: 66 Year
  Sex: Male
  Weight: 97 kg

DRUGS (1)
  1. HYDROCHLOROTHIAZIDE/LISINOPRIL [Suspect]
     Active Substance: HYDROCHLOROTHIAZIDE\LISINOPRIL
     Indication: HYPERTENSION
     Route: 048
     Dates: start: 20161101, end: 20180420

REACTIONS (12)
  - Renal impairment [None]
  - Vasculitis [None]
  - Renal cyst [None]
  - Rash [None]
  - Vitamin B12 decreased [None]
  - Acute kidney injury [None]
  - Proteinuria [None]
  - Oedema peripheral [None]
  - Rash pruritic [None]
  - Drug hypersensitivity [None]
  - Oedema [None]
  - Eosinophilia [None]

NARRATIVE: CASE EVENT DATE: 20180424
